FAERS Safety Report 15526195 (Version 2)
Quarter: 2018Q4

REPORT INFORMATION
  Report Type: Report from Study
  Country: US (occurrence: US)
  Receive Date: 20181018
  Receipt Date: 20181108
  Transmission Date: 20190205
  Serious: No
  Sender: FDA-Public Use
  Company Number: US-SHIRE-US201839975

PATIENT
  Age: 28 Year
  Sex: Female

DRUGS (1)
  1. NATPARA (PARATHYROID HORMONE) [Suspect]
     Active Substance: PARATHYROID HORMONE
     Indication: HYPOPARATHYROIDISM
     Dosage: 100 ?G, 1X/DAY:QD
     Route: 058
     Dates: start: 20161205

REACTIONS (8)
  - Paraesthesia [Recovered/Resolved]
  - Device damage [Unknown]
  - Hypocalcaemia [Unknown]
  - Inappropriate schedule of product administration [Recovered/Resolved]
  - Product quality issue [Unknown]
  - Expired device used [Unknown]
  - Muscle spasms [Recovered/Resolved]
  - Hypoaesthesia [Recovered/Resolved]

NARRATIVE: CASE EVENT DATE: 20181012
